FAERS Safety Report 12374739 (Version 1)
Quarter: 2016Q2

REPORT INFORMATION
  Report Type: Spontaneous
  Country: US (occurrence: US)
  Receive Date: 20160517
  Receipt Date: 20160517
  Transmission Date: 20160815
  Serious: No
  Sender: FDA-Public Use
  Company Number: US-PFIZER INC-2016251336

PATIENT
  Sex: Male

DRUGS (1)
  1. ADVIL [Suspect]
     Active Substance: IBUPROFEN
     Dosage: 200 MG, TOOK 20 TO 30 ADVIL

REACTIONS (3)
  - Hunger [Unknown]
  - Intentional overdose [Unknown]
  - Hypersomnia [Unknown]
